FAERS Safety Report 5670921-0 (Version None)
Quarter: 2008Q1

REPORT INFORMATION
  Report Type: 
  Country: None (occurrence: None)
  Receive Date: 20080318
  Receipt Date: 20080313
  Transmission Date: 20080703
  Serious: Yes (Other)
  Sender: FDA-Public Use
  Company Number: B0512158A

PATIENT
  Age: 43 Year
  Sex: Female

DRUGS (1)
  1. PAXIL [Suspect]
     Indication: DEPRESSION
     Dosage: 40MG PER DAY
     Route: 048

REACTIONS (5)
  - ADRENAL CARCINOMA [None]
  - BLOOD CHOLESTEROL INCREASED [None]
  - BODY FAT DISORDER [None]
  - BODY MASS INDEX INCREASED [None]
  - HEPATIC STEATOSIS [None]
